FAERS Safety Report 6519543-X (Version None)
Quarter: 2009Q4

REPORT INFORMATION
  Report Type: 
  Country: None (occurrence: None)
  Receive Date: 20091228
  Receipt Date: 20091218
  Transmission Date: 20100525
  Serious: Yes (Death, Other)
  Sender: FDA-Public Use
  Company Number: US-MILLENNIUM PHARMACEUTICALS, INC.-2009-03597

PATIENT

DRUGS (3)
  1. VELCADE [Suspect]
     Indication: ACUTE MYELOID LEUKAEMIA
     Dosage: 1.3 MG/M2, UNK
     Route: 040
     Dates: start: 20090807, end: 20090817
  2. CYTARABINE [Suspect]
     Indication: ACUTE MYELOID LEUKAEMIA
     Dosage: 100 MG/M2, UNK
     Route: 042
     Dates: start: 20090807, end: 20090814
  3. DAUNORUBICIN HCL [Suspect]
     Indication: ACUTE MYELOID LEUKAEMIA
     Dosage: 60 MG/M2, UNK
     Route: 042
     Dates: start: 20090807, end: 20090809

REACTIONS (2)
  - PULMONARY HAEMORRHAGE [None]
  - SEPSIS [None]
